FAERS Safety Report 14188224 (Version 2)
Quarter: 2017Q4

REPORT INFORMATION
  Report Type: Spontaneous
  Country: US (occurrence: US)
  Receive Date: 20171114
  Receipt Date: 20171115
  Transmission Date: 20180321
  Serious: No
  Sender: FDA-Public Use
  Company Number: US-BIOGEN-2017BI00459478

PATIENT
  Age: 13 Year
  Sex: Male

DRUGS (1)
  1. SPINRAZA [Suspect]
     Active Substance: NUSINERSEN
     Indication: SPINAL MUSCULAR ATROPHY
     Route: 042
     Dates: start: 20170406

REACTIONS (2)
  - Post lumbar puncture syndrome [Recovered/Resolved]
  - Post procedural complication [Recovered/Resolved]
